FAERS Safety Report 15757346 (Version 1)
Quarter: 2018Q4

REPORT INFORMATION
  Report Type: Spontaneous
  Country: US (occurrence: US)
  Receive Date: 20181224
  Receipt Date: 20181224
  Transmission Date: 20190205
  Serious: Yes (Other)
  Sender: FDA-Public Use
  Company Number: None

PATIENT
  Age: 52 Year
  Sex: Female

DRUGS (1)
  1. AIMOVIG [Suspect]
     Active Substance: ERENUMAB-AOOE
     Indication: MIGRAINE
     Dosage: ?          OTHER FREQUENCY:ONCE MONTHLY;?
     Route: 058
     Dates: start: 20180901, end: 20181103

REACTIONS (6)
  - Wheezing [None]
  - Drug ineffective [None]
  - Chest discomfort [None]
  - Hypersensitivity [None]
  - Dyspnoea [None]
  - Back pain [None]

NARRATIVE: CASE EVENT DATE: 20181103
